FAERS Safety Report 9796757 (Version 1)
Quarter: 2014Q1

REPORT INFORMATION
  Report Type: Spontaneous
  Country: US (occurrence: US)
  Receive Date: 20140103
  Receipt Date: 20140103
  Transmission Date: 20141002
  Serious: Yes (Congenital Anomaly, Other)
  Sender: FDA-Public Use
  Company Number: US-ABBVIE-13P-163-1183929-00

PATIENT
  Sex: Female

DRUGS (1)
  1. DEPAKOTE [Suspect]
     Indication: MATERNAL EXPOSURE TIMING UNSPECIFIED
     Route: 064

REACTIONS (14)
  - Impaired self-care [Unknown]
  - Congenital anomaly [Unknown]
  - Cognitive disorder [Unknown]
  - Foetal exposure during pregnancy [Unknown]
  - Congenital foot malformation [Unknown]
  - Nasal septum deviation [Unknown]
  - Deafness [Unknown]
  - Ear disorder [Unknown]
  - Dysmorphism [Unknown]
  - Cognitive disorder [Unknown]
  - Fear [Unknown]
  - Anxiety [Unknown]
  - Loss of employment [Unknown]
  - Motor dysfunction [Unknown]
